FAERS Safety Report 4348848-6 (Version None)
Quarter: 2004Q1

REPORT INFORMATION
  Report Type: 
  Country: None (occurrence: None)
  Receive Date: 20040325
  Receipt Date: 20040127
  Transmission Date: 20041129
  Serious: No
  Sender: FDA-Public Use
  Company Number: USA040157643

PATIENT
  Sex: Female

DRUGS (5)
  1. FORTEO [Suspect]
     Indication: OSTEOPOROSIS
     Dates: start: 20021101
  2. MECLIZINE [Concomitant]
  3. WELLBUTRIN [Concomitant]
  4. CALCIUM [Concomitant]
  5. VITAMIN B COMPLEX CAP [Concomitant]

REACTIONS (5)
  - ASTHENIA [None]
  - FATIGUE [None]
  - HYPERSOMNIA [None]
  - MUSCULAR WEAKNESS [None]
  - MYALGIA [None]
